FAERS Safety Report 4725597-3 (Version None)
Quarter: 2005Q3

REPORT INFORMATION
  Report Type: 
  Country: None (occurrence: None)
  Receive Date: 20050727
  Receipt Date: 20050720
  Transmission Date: 20060218
  Serious: Yes (Hospitalization)
  Sender: FDA-Public Use
  Company Number: FR-BRISTOL-MYERS SQUIBB COMPANY-13046263

PATIENT
  Age: 47 Year
  Sex: Male

DRUGS (3)
  1. HYDREA [Suspect]
     Indication: THROMBOCYTOPENIA
     Route: 048
     Dates: start: 20050401, end: 20050401
  2. XAGRID [Suspect]
     Dates: start: 20050401, end: 20050401
  3. KARDEGIC [Suspect]

REACTIONS (2)
  - ANAEMIA [None]
  - CORONARY ARTERY THROMBOSIS [None]
